FAERS Safety Report 17869957 (Version 1)
Quarter: 2020Q2

REPORT INFORMATION
  Report Type: Spontaneous
  Country: US (occurrence: US)
  Receive Date: 20200605
  Receipt Date: 20200605
  Transmission Date: 20200714
  Serious: No
  Sender: FDA-Public Use
  Company Number: None

PATIENT
  Sex: Female

DRUGS (1)
  1. TENOFOVIR DISOPROXIL FUMARATE 300MG AUROBINDO PHARMA [Suspect]
     Active Substance: TENOFOVIR DISOPROXIL FUMARATE
     Indication: HIV INFECTION
     Route: 048
     Dates: start: 20170109

REACTIONS (4)
  - Intentional product misuse [None]
  - Product appearance confusion [None]
  - Wrong product administered [None]
  - Extra dose administered [None]
